FAERS Safety Report 17756702 (Version 1)
Quarter: 2020Q2

REPORT INFORMATION
  Report Type: Spontaneous
  Country: CA (occurrence: CA)
  Receive Date: 20200507
  Receipt Date: 20200507
  Transmission Date: 20200714
  Serious: Yes (Other)
  Sender: FDA-Public Use
  Company Number: CA-SAMSUNG BIOEPIS-SB-2020-15259

PATIENT
  Age: 29 Year
  Sex: Female

DRUGS (1)
  1. INFLIXIMAB [Suspect]
     Active Substance: INFLIXIMAB
     Indication: CROHN^S DISEASE
     Route: 042

REACTIONS (14)
  - Pain [Unknown]
  - Off label use [Unknown]
  - Fatigue [Unknown]
  - Malaise [Unknown]
  - Nausea [Unknown]
  - Pruritus [Unknown]
  - Rectal haemorrhage [Unknown]
  - Drug level below therapeutic [Unknown]
  - Nasopharyngitis [Unknown]
  - Serum ferritin decreased [Unknown]
  - Condition aggravated [Unknown]
  - Constipation [Unknown]
  - Mean cell haemoglobin concentration decreased [Unknown]
  - Inappropriate schedule of product administration [Unknown]
